FAERS Safety Report 19970568 (Version 2)
Quarter: 2021Q4

REPORT INFORMATION
  Report Type: Spontaneous
  Country: US (occurrence: US)
  Receive Date: 20211020
  Receipt Date: 20211119
  Transmission Date: 20220303
  Serious: Yes (Other)
  Sender: FDA-Public Use
  Company Number: US-AUROBINDO-AUR-APL-2021-042849

PATIENT
  Age: 61 Year
  Sex: Male

DRUGS (4)
  1. CLINDAMYCIN [Suspect]
     Active Substance: CLINDAMYCIN
     Indication: Necrotising soft tissue infection
     Dosage: UNK
     Route: 065
     Dates: start: 2014
  2. PIPERACILLIN AND TAZOBACTAM [Suspect]
     Active Substance: PIPERACILLIN SODIUM\TAZOBACTAM SODIUM
     Indication: Necrotising soft tissue infection
     Dosage: 3.375 GRAM
     Route: 065
     Dates: start: 2014
  3. PIPERACILLIN AND TAZOBACTAM [Suspect]
     Active Substance: PIPERACILLIN SODIUM\TAZOBACTAM SODIUM
     Indication: Diabetic foot
  4. VANCOMYCIN [Suspect]
     Active Substance: VANCOMYCIN
     Indication: Necrotising soft tissue infection
     Dosage: UNK
     Route: 065
     Dates: start: 2014

REACTIONS (1)
  - Immune thrombocytopenia [Recovered/Resolved]

NARRATIVE: CASE EVENT DATE: 20140101
